FAERS Safety Report 6235491-7 (Version None)
Quarter: 2009Q2

REPORT INFORMATION
  Report Type: 
  Country: None (occurrence: None)
  Receive Date: 20090618
  Receipt Date: 20080522
  Transmission Date: 20091009
  Serious: No
  Sender: FDA-Public Use
  Company Number: US-ASTRAZENECA-2008UW10484

PATIENT
  Age: 70 Year
  Sex: Female
  Weight: 55.8 kg

DRUGS (4)
  1. RHINOCORT [Suspect]
     Indication: POSTNASAL DRIP
     Dosage: 2 SPRAYS IN EACH NOSTRIL ONCE A DAY
     Route: 045
     Dates: start: 20080521
  2. PREVACID [Concomitant]
  3. TOPROL-XL [Concomitant]
  4. TYLENOL (CAPLET) [Concomitant]

REACTIONS (1)
  - GLOSSODYNIA [None]
